FAERS Safety Report 21083014 (Version 7)
Quarter: 2022Q4

REPORT INFORMATION
  Report Type: Report from Study
  Country: US (occurrence: US)
  Receive Date: 20220714
  Receipt Date: 20221128
  Transmission Date: 20230112
  Serious: No
  Sender: FDA-Public Use
  Company Number: US-NOVARTISTESTPH-NVSC2022US159706

PATIENT
  Sex: Female

DRUGS (1)
  1. COSENTYX [Suspect]
     Active Substance: SECUKINUMAB
     Indication: Psoriasis
     Dosage: 300 MG, QMO (LIQUID)
     Route: 058

REACTIONS (6)
  - Pain [Unknown]
  - Rash macular [Not Recovered/Not Resolved]
  - Skin exfoliation [Unknown]
  - Symptom recurrence [Unknown]
  - Arthralgia [Unknown]
  - Bone pain [Unknown]
